FAERS Safety Report 21605543 (Version 1)
Quarter: 2022Q4

REPORT INFORMATION
  Report Type: Spontaneous
  Country: FR (occurrence: FR)
  Receive Date: 20221116
  Receipt Date: 20221116
  Transmission Date: 20230112
  Serious: Yes (Life-Threatening, Hospitalization)
  Sender: FDA-Public Use
  Company Number: None

PATIENT
  Age: 64 Year
  Sex: Male
  Weight: 91 kg

DRUGS (14)
  1. PREDNISONE [Suspect]
     Active Substance: PREDNISONE
     Indication: Renal transplant
     Dosage: UNIT DOSE : 10 MG,   FREQUENCY TIME : 1 DAY, DURATION : 83 DAYS
     Route: 065
     Dates: start: 20211218, end: 20220311
  2. PREDNISONE [Suspect]
     Active Substance: PREDNISONE
     Dosage: UNIT DOSE : 5 MG, FREQUENCY TIME : 1 DAY, THERAPY END DATE : NASK
     Route: 065
     Dates: start: 20220312
  3. PREDNISONE [Suspect]
     Active Substance: PREDNISONE
     Dosage: UNIT DOSE : 20 MG, DURATION : 16 DAYS, FREQUENCY TIME : 1 DAY
     Route: 065
     Dates: start: 20211120, end: 20211206
  4. PREDNISONE [Suspect]
     Active Substance: PREDNISONE
     Dosage: UNIT DOSE : 15 MG, FREQUENCY TIME : 1 DAY, DURATION : 10 DAYS
     Route: 065
     Dates: start: 20211207, end: 20211217
  5. EVEROLIMUS [Suspect]
     Active Substance: EVEROLIMUS
     Indication: Renal transplant
     Dosage: UNIT DOSE : 1.5 MG, FREQUENCY TIME : 12 HOURS, THERAPY END DATE : NASK
     Route: 065
     Dates: start: 20220627
  6. PROGRAF [Suspect]
     Active Substance: TACROLIMUS
     Indication: Renal transplant
     Dosage: UNIT DOSE : 6.5 MG, FREQUENCY TIME : 12 HOURS, DURATION  10 DAYS
     Route: 065
     Dates: start: 20211208, end: 20211218
  7. PROGRAF [Suspect]
     Active Substance: TACROLIMUS
     Dosage: UNIT DOSE : 7 MG, FREQUENCY TIME : 12 HOURS, DURATION  17 DAYS
     Route: 065
     Dates: start: 20211219, end: 20220105
  8. PROGRAF [Suspect]
     Active Substance: TACROLIMUS
     Dosage: UNIT DOSE : 7.5 MG, FREQUENCY TIME : 12 HOURS, DURATION  17 DAYS
     Route: 065
     Dates: start: 20211120, end: 20211207
  9. PROGRAF [Suspect]
     Active Substance: TACROLIMUS
     Dosage: UNIT DOSE : 5 MG, FREQUENCY TIME : 12 HOURS, DURATION  105  DAYS
     Route: 065
     Dates: start: 20220629, end: 20221012
  10. PROGRAF [Suspect]
     Active Substance: TACROLIMUS
     Dosage: UNIT DOSE : 7.5 MG, FREQUENCY TIME : 12 HOURS, DURATION : 8  DAYS
     Route: 065
     Dates: start: 20220518, end: 20220526
  11. PROGRAF [Suspect]
     Active Substance: TACROLIMUS
     Dosage: UNIT DOSE : 3 MG, FREQUENCY TIME : 12 HOURS, DURATION : 8  DAYS
     Route: 065
     Dates: start: 20221013, end: 20221021
  12. PROGRAF [Suspect]
     Active Substance: TACROLIMUS
     Dosage: UNIT DOSE : 8 MG, FREQUENCY TIME : 12 HOURS, DURATION : 124  DAYS
     Route: 065
     Dates: start: 20220106, end: 20220510
  13. PROGRAF [Suspect]
     Active Substance: TACROLIMUS
     Dosage: UNIT DOSE : 6.5 MG, FREQUENCY TIME : 12 HOURS, DURATION : 32 DAYS
     Route: 065
     Dates: start: 20220527, end: 20220628
  14. PROGRAF [Suspect]
     Active Substance: TACROLIMUS
     Dosage: UNIT DOSE : 7 MG, FREQUENCY TIME : 12 HOURS, DURATION : 6 DAYS
     Route: 065
     Dates: start: 20220511, end: 20220517

REACTIONS (1)
  - Pneumocystis jirovecii pneumonia [Recovering/Resolving]

NARRATIVE: CASE EVENT DATE: 20221019
